FAERS Safety Report 10777772 (Version 3)
Quarter: 2016Q2

REPORT INFORMATION
  Report Type: Report from Study
  Country: DE (occurrence: DE)
  Receive Date: 20150209
  Receipt Date: 20160606
  Transmission Date: 20160815
  Serious: Yes (Death, Other)
  Sender: FDA-Public Use
  Company Number: PHHY2015DE015359

PATIENT
  Sex: Female
  Weight: 77 kg

DRUGS (3)
  1. ULTIBRO BREEZHALER [Suspect]
     Active Substance: GLYCOPYRRONIUM\INDACATEROL
     Indication: CHRONIC OBSTRUCTIVE PULMONARY DISEASE
     Dosage: 1 DF (83/43 UG), QD
     Route: 055
     Dates: start: 20140207, end: 20140526
  2. BERODUAL N [Concomitant]
     Active Substance: FENOTEROL HYDROBROMIDE\IPRATROPIUM BROMIDE
     Indication: CHRONIC OBSTRUCTIVE PULMONARY DISEASE
     Dosage: UNK, PRN
     Route: 065
     Dates: start: 20140207
  3. ATMADISC [Suspect]
     Active Substance: FLUTICASONE PROPIONATE\SALMETEROL XINAFOATE
     Indication: PRODUCT USED FOR UNKNOWN INDICATION
     Dosage: UNK
     Route: 065
     Dates: start: 20140526

REACTIONS (15)
  - Multiple organ dysfunction syndrome [Fatal]
  - Inflammatory marker increased [Unknown]
  - Protein deficiency [Unknown]
  - Adjustment disorder with depressed mood [Unknown]
  - Decreased appetite [Unknown]
  - Diarrhoea [Unknown]
  - Acute kidney injury [Unknown]
  - Intensive care unit acquired weakness [Unknown]
  - Apathy [Unknown]
  - Sepsis [Fatal]
  - Oedema [Unknown]
  - Asthenia [Fatal]
  - Clostridium difficile colitis [Unknown]
  - General physical health deterioration [Fatal]
  - Complication associated with device [Unknown]

NARRATIVE: CASE EVENT DATE: 20141031
